FAERS Safety Report 5479028-9 (Version None)
Quarter: 2007Q4

REPORT INFORMATION
  Report Type: 
  Country: None (occurrence: None)
  Receive Date: 20071006
  Receipt Date: 20070925
  Transmission Date: 20080405
  Serious: Yes (Other)
  Sender: FDA-Public Use
  Company Number: CN-PFIZER INC-2007080729

PATIENT
  Age: 64 Year
  Sex: Female

DRUGS (1)
  1. SULPERAZON [Suspect]
     Indication: LUNG INFECTION
     Route: 042
     Dates: start: 20070829, end: 20070911

REACTIONS (3)
  - HAEMORRHAGE SUBCUTANEOUS [None]
  - INJECTION SITE HAEMORRHAGE [None]
  - SUBCUTANEOUS HAEMATOMA [None]
